FAERS Safety Report 5168589-5 (Version None)
Quarter: 2006Q4

REPORT INFORMATION
  Report Type: 
  Country: None (occurrence: None)
  Receive Date: 20061209
  Receipt Date: 20061128
  Transmission Date: 20070319
  Serious: Yes (Other)
  Sender: FDA-Public Use
  Company Number: CM-MERCK-0611USA07232

PATIENT
  Age: 26 Year
  Sex: Female

DRUGS (8)
  1. STROMECTOL [Suspect]
     Route: 048
     Dates: start: 20061107, end: 20061107
  2. DEXAMETHASONE [Suspect]
     Indication: PRURITUS
     Route: 048
     Dates: start: 20061109, end: 20061112
  3. DEXAMETHASONE [Suspect]
     Route: 048
     Dates: start: 20051201
  4. DEXAMETHASONE [Suspect]
     Indication: RASH
     Route: 048
     Dates: start: 20061109, end: 20061112
  5. DEXAMETHASONE [Suspect]
     Route: 048
     Dates: start: 20051201
  6. DEXAMETHASONE [Concomitant]
     Route: 065
  7. CHLORPHENIRAMINE MALEATE [Concomitant]
     Route: 065
  8. PREDNISOLONE [Concomitant]
     Route: 065

REACTIONS (11)
  - BLISTER [None]
  - DYSKINESIA [None]
  - GENERALISED OEDEMA [None]
  - INFECTION [None]
  - MALARIA [None]
  - OEDEMA MUCOSAL [None]
  - ORAL INTAKE REDUCED [None]
  - PRURITUS [None]
  - RASH [None]
  - STEVENS-JOHNSON SYNDROME [None]
  - TONGUE OEDEMA [None]
